FAERS Safety Report 10677668 (Version 2)
Quarter: 2015Q1

REPORT INFORMATION
  Report Type: Spontaneous
  Country: IN (occurrence: IN)
  Receive Date: 20141229
  Receipt Date: 20150204
  Transmission Date: 20150720
  Serious: Yes (Other)
  Sender: FDA-Public Use
  Company Number: IN-AUROBINDO-AUR-APL-2014-13307

PATIENT
  Age: 46 Year
  Sex: Female

DRUGS (3)
  1. CEFTRIAXONE. [Suspect]
     Active Substance: CEFTRIAXONE
     Indication: ENCEPHALITIS
     Dosage: UNK
     Route: 042
  2. LEVETIRACETAM. [Suspect]
     Active Substance: LEVETIRACETAM
     Indication: ENCEPHALITIS
     Dosage: LOADING DOSE 20 MG/KG FOLLOWED BY 500 MG 8TH HOURLY
     Route: 065
  3. ACYCLOVIR                          /00587301/ [Concomitant]
     Active Substance: ACYCLOVIR
     Indication: ENCEPHALITIS
     Dosage: UNK
     Route: 065

REACTIONS (7)
  - Encephalopathy [Recovered/Resolved]
  - Unresponsive to stimuli [Unknown]
  - CSF cell count decreased [Unknown]
  - CSF protein increased [Unknown]
  - Status epilepticus [Unknown]
  - Stupor [Unknown]
  - Mental status changes [Unknown]
